FAERS Safety Report 5865271-3 (Version None)
Quarter: 2008Q3

REPORT INFORMATION
  Report Type: 
  Country: None (occurrence: None)
  Receive Date: 20080829
  Receipt Date: 20080424
  Transmission Date: 20090109
  Serious: No
  Sender: FDA-Public Use
  Company Number: A0714081A

PATIENT
  Age: 69 Year
  Sex: Female

DRUGS (7)
  1. BECONASE AQ [Suspect]
     Route: 045
     Dates: start: 20060501
  2. DIOVAN HCT [Concomitant]
  3. PATANOL [Concomitant]
  4. RESTASIS [Concomitant]
  5. ZETIA [Concomitant]
  6. PREVACID [Concomitant]
  7. PEG [Concomitant]

REACTIONS (2)
  - PHARMACEUTICAL PRODUCT COMPLAINT [None]
  - THERAPEUTIC RESPONSE DECREASED [None]
